FAERS Safety Report 10590519 (Version 2)
Quarter: 2015Q2

REPORT INFORMATION
  Report Type: Spontaneous
  Country: AR (occurrence: AR)
  Receive Date: 20141118
  Receipt Date: 20150430
  Transmission Date: 20150821
  Serious: Yes (Other)
  Sender: FDA-Public Use
  Company Number: AR-PFIZER INC-2014313910

PATIENT
  Age: 65 Year
  Sex: Female

DRUGS (4)
  1. XELJANZ [Suspect]
     Active Substance: TOFACITINIB CITRATE
     Indication: RHEUMATOID ARTHRITIS
     Dosage: 5 MG, 2X/DAY
     Dates: start: 20140708
  2. OXA B12 /01472301/ [Concomitant]
     Dosage: UNK
     Dates: start: 2014
  3. XELJANZ [Suspect]
     Active Substance: TOFACITINIB CITRATE
     Dosage: 5 MG, 2X/DAY
  4. LOSACOR D [Concomitant]
     Dosage: UNK

REACTIONS (6)
  - Oropharyngeal pain [Recovering/Resolving]
  - Mobility decreased [Not Recovered/Not Resolved]
  - Aphthous stomatitis [Recovering/Resolving]
  - Weight increased [Recovering/Resolving]
  - Pharyngitis [Recovering/Resolving]
  - Ear pain [Recovered/Resolved]

NARRATIVE: CASE EVENT DATE: 2014
